FAERS Safety Report 15661100 (Version 1)
Quarter: 2018Q4

REPORT INFORMATION
  Report Type: Spontaneous
  Country: GB (occurrence: GB)
  Receive Date: 20181127
  Receipt Date: 20181127
  Transmission Date: 20190205
  Serious: Yes (Hospitalization, Other)
  Sender: FDA-Public Use
  Company Number: GB-PFIZER INC-2018479906

PATIENT
  Age: 64 Year
  Sex: Female

DRUGS (3)
  1. BISOPROLOL [Concomitant]
     Active Substance: BISOPROLOL
     Dosage: 1.25 MG, 1X/DAY
  2. CABERGOLINE. [Suspect]
     Active Substance: CABERGOLINE
     Indication: MACROPROLACTINAEMIA
     Dosage: 500 UG, WEEKLY (SUNDAY AND WEDNESDAY)
     Dates: end: 20180412
  3. PARACETAMOL [Concomitant]
     Active Substance: ACETAMINOPHEN
     Dosage: 1 G, AS NEEDED (FOUR TIMES DAILY)

REACTIONS (2)
  - Cerebrospinal fluid leakage [Unknown]
  - Rhinorrhoea [Unknown]

NARRATIVE: CASE EVENT DATE: 20180411
